FAERS Safety Report 4530252-9 (Version None)
Quarter: 2004Q4

REPORT INFORMATION
  Report Type: 
  Country: None (occurrence: None)
  Receive Date: 20041215
  Receipt Date: 20041206
  Transmission Date: 20050328
  Serious: Yes (Death, Other)
  Sender: FDA-Public Use
  Company Number: 2004105777

PATIENT
  Age: 71 Year
  Sex: Female

DRUGS (7)
  1. NORVASC [Suspect]
     Indication: ILL-DEFINED DISORDER
     Dosage: 10 MG (10 MG, 1 IN 1 D), ORAL
     Route: 048
     Dates: start: 20040101, end: 20040101
  2. ACCUPRIL [Suspect]
     Indication: ILL-DEFINED DISORDER
     Dosage: 40 MG (10 MG, 1 IN 1 D), ORAL
     Route: 048
     Dates: start: 20040101, end: 20040101
  3. BEXTRA [Suspect]
     Indication: ILL-DEFINED DISORDER
     Dosage: ORAL
     Route: 048
     Dates: start: 20040101, end: 20040101
  4. SPIRONOLACTONE [Concomitant]
  5. HYDROCHLOROTHIAZIDE [Concomitant]
  6. ROSIGLITAZONE MALEATE [Concomitant]
  7. BISOPROLOL FUMARATE [Concomitant]

REACTIONS (2)
  - CIRCULATORY COLLAPSE [None]
  - MYOCARDIAL INFARCTION [None]
